FAERS Safety Report 11079524 (Version 3)
Quarter: 2015Q3

REPORT INFORMATION
  Report Type: Spontaneous
  Country: US (occurrence: US)
  Receive Date: 20150430
  Receipt Date: 20150722
  Transmission Date: 20151125
  Serious: Yes (Other)
  Sender: FDA-Public Use
  Company Number: US-GILEAD-2015-0150937

PATIENT
  Age: 59 Year
  Sex: Female
  Weight: 78.9 kg

DRUGS (2)
  1. HARVONI [Suspect]
     Active Substance: LEDIPASVIR\SOFOSBUVIR
     Indication: CHRONIC HEPATITIS C
     Dosage: UNK
     Route: 065
     Dates: start: 20141203, end: 201502
  2. ARMOUR THYROID [Concomitant]
     Active Substance: THYROID, PORCINE\THYROID, UNSPECIFIED
     Indication: THYROID DISORDER
     Dosage: 30 MG (1.5 TABS) QD
     Route: 048

REACTIONS (7)
  - Pain in extremity [Recovered/Resolved]
  - Feeling cold [Recovered/Resolved]
  - Neuropathy peripheral [Recovered/Resolved]
  - Myalgia [Recovered/Resolved]
  - Unevaluable event [Recovered/Resolved]
  - Temperature intolerance [Recovered/Resolved]
  - Retinal detachment [Recovered/Resolved]
